FAERS Safety Report 7940891-0 (Version None)
Quarter: 2011Q4

REPORT INFORMATION
  Report Type: 
  Country: None (occurrence: None)
  Receive Date: 20111122
  Receipt Date: 20111110
  Transmission Date: 20120403
  Serious: Yes (Hospitalization)
  Sender: FDA-Public Use
  Company Number: 1106545

PATIENT
  Age: 14 Year
  Sex: Female

DRUGS (4)
  1. CEPHALEXIN [Concomitant]
  2. OXCARBAZEPINE [Suspect]
     Indication: EPILEPSY
  3. PHENYTOIN [Suspect]
     Indication: EPILEPSY
  4. VALPROIC ACID [Suspect]
     Indication: EPILEPSY

REACTIONS (4)
  - INTRA-CRANIAL LESION EXCISION [None]
  - ROSEOLOVIRUS TEST POSITIVE [None]
  - HEPATITIS [None]
  - DRUG RASH WITH EOSINOPHILIA AND SYSTEMIC SYMPTOMS [None]
